FAERS Safety Report 9688103 (Version 1)
Quarter: 2013Q4

REPORT INFORMATION
  Report Type: Spontaneous
  Country: US (occurrence: None)
  Receive Date: 20131113
  Receipt Date: 20131113
  Transmission Date: 20140711
  Serious: Yes (Disabling)
  Sender: FDA-Public Use
  Company Number: None

PATIENT
  Age: 51 Year
  Sex: Female
  Weight: 101.15 kg

DRUGS (1)
  1. CIPROFLOXACIN 500MG [Suspect]
     Indication: URINARY TRACT INFECTION
     Route: 048
     Dates: start: 20130220, end: 20130330

REACTIONS (9)
  - Abasia [None]
  - Pain in extremity [None]
  - Burning sensation [None]
  - Myalgia [None]
  - Pain in extremity [None]
  - Insomnia [None]
  - Neuropathy peripheral [None]
  - Urinary tract infection [None]
  - Activities of daily living impaired [None]
